FAERS Safety Report 25175871 (Version 1)
Quarter: 2025Q2

REPORT INFORMATION
  Report Type: Spontaneous
  Country: US (occurrence: US)
  Receive Date: 20250408
  Receipt Date: 20250408
  Transmission Date: 20250716
  Serious: Yes (Other)
  Sender: SANOFI AVENTIS
  Company Number: US-DialogSolutions-SAAVPROD-PI753215-C1

PATIENT
  Age: 70 Year
  Sex: Male

DRUGS (6)
  1. INSULIN ASPART [Suspect]
     Active Substance: INSULIN ASPART
     Indication: Hyperglycaemia
  2. INSULIN ASPART [Suspect]
     Active Substance: INSULIN ASPART
     Indication: Hypoglycaemia
  3. INSULIN GLARGINE [Suspect]
     Active Substance: INSULIN GLARGINE
     Indication: Hyperglycaemia
  4. INSULIN GLARGINE [Suspect]
     Active Substance: INSULIN GLARGINE
     Indication: Hypoglycaemia
  5. NPH INSULIN [Suspect]
     Active Substance: INSULIN BEEF
     Indication: Hyperglycaemia
  6. NPH INSULIN [Suspect]
     Active Substance: INSULIN BEEF
     Indication: Hypoglycaemia

REACTIONS (3)
  - Diabetes mellitus inadequate control [Recovering/Resolving]
  - Hyperglycaemia [Recovering/Resolving]
  - Hypoglycaemia [Recovering/Resolving]
